FAERS Safety Report 12381046 (Version 1)
Quarter: 2016Q2

REPORT INFORMATION
  Report Type: Spontaneous
  Country: TH (occurrence: TH)
  Receive Date: 20160518
  Receipt Date: 20160518
  Transmission Date: 20160815
  Serious: Yes (Other)
  Sender: FDA-Public Use
  Company Number: TH-PFIZER INC-2016259165

PATIENT
  Age: 26 Year
  Sex: Male
  Weight: 86.17 kg

DRUGS (2)
  1. ZOLOFT [Suspect]
     Active Substance: SERTRALINE HYDROCHLORIDE
     Dosage: UNK
     Dates: start: 2005
  2. RISPERDAL [Suspect]
     Active Substance: RISPERIDONE
     Indication: SCHIZOPHRENIA
     Dosage: UNK
     Route: 048
     Dates: start: 200502, end: 200509

REACTIONS (7)
  - Affect lability [Unknown]
  - Product shape issue [Unknown]
  - Dependence [Unknown]
  - Drug withdrawal syndrome [Unknown]
  - Personal relationship issue [Unknown]
  - Psychotic disorder [Unknown]
  - Underdose [Unknown]

NARRATIVE: CASE EVENT DATE: 2005
